FAERS Safety Report 25587361 (Version 1)
Quarter: 2025Q3

REPORT INFORMATION
  Report Type: Spontaneous
  Country: US (occurrence: None)
  Receive Date: 20250721
  Receipt Date: 20250721
  Transmission Date: 20251020
  Serious: Yes (Hospitalization)
  Sender: FDA-CTU
  Company Number: None

PATIENT
  Age: 69 Year
  Sex: Female

DRUGS (16)
  1. MYCOPHENOLATE MOFETIL [Suspect]
     Active Substance: MYCOPHENOLATE MOFETIL
     Indication: Lung transplant
     Dosage: 1000 MG TWICE A DAY ORAL?
     Route: 048
     Dates: start: 20250225
  2. TACROLIMUS [Suspect]
     Active Substance: TACROLIMUS
     Indication: Lung transplant
     Dosage: 0.5 MG DAILY ORAL ?
     Route: 048
     Dates: start: 20250214
  3. PREVYMIS [Concomitant]
     Active Substance: LETERMOVIR
  4. VALACYCLOVIR [Concomitant]
     Active Substance: VALACYCLOVIR HYDROCHLORIDE
  5. METOPROLOL SUCCINATE [Concomitant]
     Active Substance: METOPROLOL SUCCINATE
  6. OMEPRAZOLE [Concomitant]
     Active Substance: OMEPRAZOLE
  7. PREDNISONE [Concomitant]
     Active Substance: PREDNISONE
  8. ROSUVASTATIN [Concomitant]
     Active Substance: ROSUVASTATIN
  9. BACTRIM [Concomitant]
     Active Substance: SULFAMETHOXAZOLE\TRIMETHOPRIM
  10. LOKELMA [Concomitant]
     Active Substance: SODIUM ZIRCONIUM CYCLOSILICATE
  11. ELIQUIS [Concomitant]
     Active Substance: APIXABAN
  12. TRAZODONE [Concomitant]
     Active Substance: TRAZODONE HYDROCHLORIDE
  13. AMIODARONE [Concomitant]
     Active Substance: AMIODARONE
  14. GABAPENTIN [Concomitant]
     Active Substance: GABAPENTIN
  15. ZARXIO [Concomitant]
     Active Substance: FILGRASTIM-SNDZ
  16. CRESEMBA [Concomitant]
     Active Substance: ISAVUCONAZONIUM SULFATE

REACTIONS (1)
  - Complications of transplanted lung [None]

NARRATIVE: CASE EVENT DATE: 20250616
